FAERS Safety Report 13361044 (Version 1)
Quarter: 2017Q1

REPORT INFORMATION
  Report Type: Spontaneous
  Country: BE (occurrence: BE)
  Receive Date: 20170322
  Receipt Date: 20170322
  Transmission Date: 20170429
  Serious: Yes (Death, Hospitalization, Other)
  Sender: FDA-Public Use
  Company Number: BE-ABBVIE-17P-013-1910986-00

PATIENT
  Age: 63 Year
  Sex: Female

DRUGS (1)
  1. HUMIRA [Suspect]
     Active Substance: ADALIMUMAB
     Indication: RHEUMATOID ARTHRITIS
     Route: 065
     Dates: start: 2007

REACTIONS (8)
  - Fluid intake reduced [Unknown]
  - Emotional disorder [Unknown]
  - Arthralgia [Unknown]
  - Hypophagia [Unknown]
  - Pancreatitis [Unknown]
  - Renal failure [Unknown]
  - Lung infection [Unknown]
  - Hypovolaemic shock [Fatal]
